FAERS Safety Report 6507779 (Version 15)
Quarter: 2013Q1

REPORT INFORMATION
  Report Type: Spontaneous
  Country: US (occurrence: US)
  Receive Date: 20071218
  Receipt Date: 20130206
  Transmission Date: 20140127
  Serious: Yes (Death, Hospitalization, Other)
  Sender: FDA-Public Use
  Company Number: US-JNJFOC-20071202395

PATIENT
  Age: 19 Year
  Sex: Male
  Weight: 81.19 kg

DRUGS (15)
  1. REMICADE [Suspect]
     Indication: CROHN^S DISEASE
     Dosage: STARTED IN OCT OR NOV-2005
     Route: 042
     Dates: start: 20051001
  2. REMICADE [Suspect]
     Indication: CROHN^S DISEASE
     Dosage: ONCE EVERY 6 TO 7 WEEKS
     Route: 042
     Dates: end: 20071120
  3. 6-MERCAPTOPURINE [Suspect]
     Indication: CROHN^S DISEASE
     Route: 048
  4. 6-MERCAPTOPURINE [Suspect]
     Indication: CROHN^S DISEASE
     Route: 048
  5. 6-MERCAPTOPURINE [Suspect]
     Indication: CROHN^S DISEASE
     Route: 048
     Dates: start: 20050201
  6. ALLOPURINOL [Concomitant]
  7. WELBUTRIN [Concomitant]
  8. BENTYL [Concomitant]
  9. DOXYCYCLINE [Concomitant]
  10. CLARITIN [Concomitant]
  11. MESALAMINE [Concomitant]
  12. PROTONIX [Concomitant]
  13. ZOLOFT [Concomitant]
  14. AMBIEN [Concomitant]
  15. STEROIDS NOS [Concomitant]

REACTIONS (6)
  - Hepatosplenic T-cell lymphoma [Fatal]
  - Lung infection [Fatal]
  - Pneumothorax [Unknown]
  - Renal failure [Unknown]
  - Mechanical ventilation [Unknown]
  - Sinus disorder [Unknown]
